FAERS Safety Report 18140114 (Version 2)
Quarter: 2020Q3

REPORT INFORMATION
  Report Type: Spontaneous
  Country: US (occurrence: US)
  Receive Date: 20200812
  Receipt Date: 20200825
  Transmission Date: 20201103
  Serious: Yes (Hospitalization, Other)
  Sender: FDA-Public Use
  Company Number: US-BRISTOL-MYERS SQUIBB COMPANY-BMS-2020-064842

PATIENT
  Age: 66 Year
  Sex: Female
  Weight: 104.31 kg

DRUGS (3)
  1. WARFARIN SODIUM. [Suspect]
     Active Substance: WARFARIN SODIUM
     Indication: PRODUCT USED FOR UNKNOWN INDICATION
     Route: 065
  2. REMODULIN [Suspect]
     Active Substance: TREPROSTINIL
     Indication: PULMONARY ARTERIAL HYPERTENSION
     Dosage: UNK, CONTINUOUS
     Route: 058
     Dates: start: 20090318
  3. REMODULIN [Suspect]
     Active Substance: TREPROSTINIL
     Dosage: 0.1023 MICROGRAM/KILOGRAM, CONTINUOUS
     Route: 058

REACTIONS (3)
  - Thrombocytopenia [Unknown]
  - Dyspnoea [Unknown]
  - Haemorrhage [Unknown]

NARRATIVE: CASE EVENT DATE: 20200801
